FAERS Safety Report 18379638 (Version 8)
Quarter: 2025Q2

REPORT INFORMATION
  Report Type: Report from Study
  Country: US (occurrence: US)
  Receive Date: 20201014
  Receipt Date: 20250410
  Transmission Date: 20250716
  Serious: No
  Sender: TAKEDA
  Company Number: US-SHIRE-US202033410

PATIENT
  Sex: Male
  Weight: 88 kg

DRUGS (23)
  1. HUMAN IMMUNOGLOBULIN G [Suspect]
     Active Substance: HUMAN IMMUNOGLOBULIN G
     Indication: Immunodeficiency common variable
     Dosage: 30 GRAM, Q4WEEKS
     Dates: start: 20191220
  2. HUMAN IMMUNOGLOBULIN G [Suspect]
     Active Substance: HUMAN IMMUNOGLOBULIN G
     Dosage: 40 GRAM, Q4WEEKS
  3. DIPHENHYDRAMINE [Concomitant]
     Active Substance: DIPHENHYDRAMINE
  4. CALCITRIOL [Concomitant]
     Active Substance: CALCITRIOL
  5. EPINEPHRINE [Concomitant]
     Active Substance: EPINEPHRINE
  6. SODIUM CHLORIDE [Concomitant]
     Active Substance: SODIUM CHLORIDE
  7. CIPROFLOXACIN HYDROCHLORIDE [Concomitant]
     Active Substance: CIPROFLOXACIN HYDROCHLORIDE
  8. PFIZER-BIONTECH COVID-19 VACCINE [Concomitant]
     Active Substance: TOZINAMERAN
  9. ASPIRIN [Concomitant]
     Active Substance: ASPIRIN
  10. LASIX [Concomitant]
     Active Substance: FUROSEMIDE
  11. CIALIS [Concomitant]
     Active Substance: TADALAFIL
  12. ACETAMINOPHEN [Concomitant]
     Active Substance: ACETAMINOPHEN
  13. URSODIOL [Concomitant]
     Active Substance: URSODIOL
  14. NADOLOL [Concomitant]
     Active Substance: NADOLOL
  15. ALLOPURINOL [Concomitant]
     Active Substance: ALLOPURINOL
  16. TRIAMTERENE [Concomitant]
     Active Substance: TRIAMTERENE
  17. FISH OIL [Concomitant]
     Active Substance: FISH OIL
  18. Lmx [Concomitant]
  19. VITAMIN D [Concomitant]
     Active Substance: VITAMIN D NOS
  20. ATORVASTATIN CALCIUM [Concomitant]
     Active Substance: ATORVASTATIN CALCIUM
  21. DIPHENHYDRAMINE HYDROCHLORIDE [Concomitant]
     Active Substance: DIPHENHYDRAMINE HYDROCHLORIDE
  22. RECLAST [Concomitant]
     Active Substance: ZOLEDRONIC ACID
  23. AMLODIPINE BESYLATE [Concomitant]
     Active Substance: AMLODIPINE BESYLATE

REACTIONS (7)
  - Blood potassium decreased [Unknown]
  - COVID-19 [Recovered/Resolved]
  - Inappropriate schedule of product administration [Unknown]
  - Device physical property issue [Unknown]
  - Implant site bruising [Unknown]
  - Procedural pain [Unknown]
  - Hypertension [Unknown]
